FAERS Safety Report 10010643 (Version 1)
Quarter: 2014Q1

REPORT INFORMATION
  Report Type: Spontaneous
  Country: US (occurrence: None)
  Receive Date: 20140312
  Receipt Date: 20140312
  Transmission Date: 20141002
  Serious: Yes (Hospitalization)
  Sender: FDA-Public Use
  Company Number: None

PATIENT
  Age: 15 Year
  Sex: Male

DRUGS (5)
  1. NEUPOGEN [Suspect]
     Dosage: 480 MCG DAILY FOR 10 DAYS, STARTING 24HOURS AFTER CHEMO THERAPY
     Route: 058
     Dates: start: 20140115
  2. RANTIDINE [Concomitant]
  3. GABAPENTIN [Concomitant]
  4. ZOFRAN [Concomitant]
  5. BACTRIM [Concomitant]

REACTIONS (1)
  - Malaise [None]
